FAERS Safety Report 21330330 (Version 1)
Quarter: 2022Q3

REPORT INFORMATION
  Report Type: Spontaneous
  Country: US (occurrence: US)
  Receive Date: 20220913
  Receipt Date: 20220913
  Transmission Date: 20221026
  Serious: No
  Sender: FDA-Public Use
  Company Number: US-SA-SAC20220909000327

PATIENT
  Age: 34 Year
  Sex: Female

DRUGS (1)
  1. AUBAGIO [Suspect]
     Active Substance: TERIFLUNOMIDE
     Indication: Multiple sclerosis
     Dosage: 14MG, QD
     Route: 048
     Dates: start: 202207

REACTIONS (4)
  - COVID-19 [Unknown]
  - Cough [Unknown]
  - Rhinorrhoea [Unknown]
  - Influenza [Unknown]

NARRATIVE: CASE EVENT DATE: 20220101
